FAERS Safety Report 19759826 (Version 1)
Quarter: 2021Q3

REPORT INFORMATION
  Report Type: Spontaneous
  Country: US (occurrence: US)
  Receive Date: 20210830
  Receipt Date: 20210830
  Transmission Date: 20211014
  Serious: No
  Sender: FDA-Public Use
  Company Number: US-BEH-2021135325

PATIENT
  Sex: Female

DRUGS (1)
  1. HIZENTRA [Suspect]
     Active Substance: HUMAN IMMUNOGLOBULIN G
     Indication: IMMUNODEFICIENCY
     Dosage: 25 MILLILITER, QOW
     Route: 058
     Dates: start: 20210317

REACTIONS (2)
  - Haematoma [Not Recovered/Not Resolved]
  - Infusion site mass [Not Recovered/Not Resolved]
